FAERS Safety Report 4650416-3 (Version None)
Quarter: 2005Q2

REPORT INFORMATION
  Report Type: 
  Country: None (occurrence: None)
  Receive Date: 20050429
  Receipt Date: 20050421
  Transmission Date: 20051028
  Serious: Yes (Other)
  Sender: FDA-Public Use
  Company Number: 2005063515

PATIENT
  Age: 23 Year
  Sex: Female

DRUGS (1)
  1. BEXTRA [Suspect]
     Indication: MUSCLE CONTRACTURE
     Dosage: ORAL
     Route: 048
     Dates: start: 20041101

REACTIONS (2)
  - GLOMERULONEPHRITIS [None]
  - NEPHROTIC SYNDROME [None]
